FAERS Safety Report 17910868 (Version 1)
Quarter: 2020Q2

REPORT INFORMATION
  Report Type: Spontaneous
  Country: FR (occurrence: FR)
  Receive Date: 20200618
  Receipt Date: 20200618
  Transmission Date: 20200714
  Serious: Yes (Life-Threatening, Other)
  Sender: FDA-Public Use
  Company Number: FR-AUROBINDO-AUR-APL-2020-029452

PATIENT
  Age: 31 Year
  Sex: Female

DRUGS (3)
  1. PROPRANOLOL [Suspect]
     Active Substance: PROPRANOLOL HYDROCHLORIDE
     Indication: ANXIETY
     Dosage: UNK
     Route: 048
     Dates: start: 2018
  2. AMITRIPTYLINE [Suspect]
     Active Substance: AMITRIPTYLINE
     Indication: COMPLEX REGIONAL PAIN SYNDROME
     Dosage: 150 GTT DROPS, ONCE A DAY
     Route: 048
     Dates: start: 201905
  3. GABAPENTIN. [Suspect]
     Active Substance: GABAPENTIN
     Indication: COMPLEX REGIONAL PAIN SYNDROME
     Dosage: 3200 MILLIGRAM, ONCE A DAY
     Route: 048
     Dates: start: 201801

REACTIONS (2)
  - Respiratory distress [Recovered/Resolved with Sequelae]
  - Laryngeal dyspnoea [Recovered/Resolved with Sequelae]

NARRATIVE: CASE EVENT DATE: 202005
